FAERS Safety Report 4736308-X (Version None)
Quarter: 2005Q3

REPORT INFORMATION
  Report Type: 
  Country: None (occurrence: None)
  Receive Date: 20050804
  Receipt Date: 20050723
  Transmission Date: 20060218
  Serious: Yes (Hospitalization, Other)
  Sender: FDA-Public Use
  Company Number: 2005096361

PATIENT
  Age: 86 Year
  Sex: Female
  Weight: 58.9676 kg

DRUGS (5)
  1. TIKOSYN [Suspect]
     Indication: ATRIAL FIBRILLATION
     Dosage: 0.5 MG (0.25 MG, 2 IN 1 D), ORAL
     Route: 048
     Dates: start: 20050401
  2. CARDIZEM [Concomitant]
  3. HUMALOG [Concomitant]
  4. ALPHAGAN [Concomitant]
  5. LUMIGAN [Concomitant]

REACTIONS (1)
  - PANCREATIC CARCINOMA [None]
